FAERS Safety Report 7824470-1 (Version None)
Quarter: 2011Q4

REPORT INFORMATION
  Report Type: 
  Country: None (occurrence: None)
  Receive Date: 20111019
  Receipt Date: 20111011
  Transmission Date: 20120403
  Serious: Yes (Other)
  Sender: FDA-Public Use
  Company Number: TW-JNJFOC-20111005322

PATIENT
  Age: 72 Year
  Sex: Female

DRUGS (1)
  1. ULTRACET [Suspect]
     Indication: PRODUCT USED FOR UNKNOWN INDICATION
     Route: 048

REACTIONS (7)
  - DIZZINESS [None]
  - SPINAL COLUMN STENOSIS [None]
  - ABDOMINAL DISCOMFORT [None]
  - HEADACHE [None]
  - GASTRITIS [None]
  - NAUSEA [None]
  - ESSENTIAL HYPERTENSION [None]
